FAERS Safety Report 16893440 (Version 2)
Quarter: 2022Q1

REPORT INFORMATION
  Report Type: Report from Study
  Country: US (occurrence: None)
  Receive Date: 20191008
  Receipt Date: 20220208
  Transmission Date: 20220423
  Serious: Yes (Hospitalization, Other)
  Sender: FDA-Public Use
  Company Number: US-ROCHE-2206882

PATIENT
  Age: 75 Year
  Sex: Female
  Weight: 91 kg

DRUGS (16)
  1. ATEZOLIZUMAB [Suspect]
     Active Substance: ATEZOLIZUMAB
     Indication: Cholangiocarcinoma
     Dosage: DATE OF MOST RECENT DOSE: 10/OCT/2018.?THIS WAS ALSO THE MOST RECENT DOSE OF ATEZOLIZUMAB (1200 MG)
     Route: 042
     Dates: start: 20180913
  2. ATEZOLIZUMAB [Suspect]
     Active Substance: ATEZOLIZUMAB
     Indication: Bile duct adenocarcinoma
  3. COBIMETINIB [Suspect]
     Active Substance: COBIMETINIB
     Indication: Cholangiocarcinoma
     Dosage: ON DAYS 1 AND 21?DATE OF MOST RECENT DOSE 10/OCT/2018. (40 MG)?DATE OF RECENT DOSE OF COBIMETINIB (6
     Route: 048
     Dates: start: 20180913
  4. COBIMETINIB [Suspect]
     Active Substance: COBIMETINIB
     Indication: Bile duct adenocarcinoma
  5. ATENOLOL [Concomitant]
     Active Substance: ATENOLOL
  6. IMODIUM [Concomitant]
     Active Substance: LOPERAMIDE HYDROCHLORIDE
  7. LISINOPRIL [Concomitant]
     Active Substance: LISINOPRIL
  8. NORCO [Concomitant]
     Active Substance: ACETAMINOPHEN\HYDROCODONE BITARTRATE
  9. TRAZODONE HCL [Concomitant]
     Active Substance: TRAZODONE HYDROCHLORIDE
  10. HYDROCHLOROTHIAZIDE\TRIAMTERENE [Concomitant]
     Active Substance: HYDROCHLOROTHIAZIDE\TRIAMTERENE
  11. ULTRAM [Concomitant]
     Active Substance: TRAMADOL HYDROCHLORIDE
  12. VESICARE [Concomitant]
     Active Substance: SOLIFENACIN SUCCINATE
  13. VITAMIN C [Concomitant]
     Active Substance: ASCORBIC ACID
  14. VITAMIN D3 [Concomitant]
     Active Substance: CHOLECALCIFEROL
  15. ZANTAC [Concomitant]
     Active Substance: RANITIDINE HYDROCHLORIDE
  16. ZOCOR [Concomitant]
     Active Substance: SIMVASTATIN

REACTIONS (7)
  - Ascites [Recovered/Resolved]
  - Abdominal pain [Recovered/Resolved]
  - Diarrhoea [Recovered/Resolved]
  - Oesophagitis [Recovered/Resolved]
  - Hyponatraemia [Unknown]
  - Lymphocyte count decreased [Unknown]
  - Hypoalbuminaemia [Unknown]

NARRATIVE: CASE EVENT DATE: 20180915
